FAERS Safety Report 16687216 (Version 1)
Quarter: 2019Q3

REPORT INFORMATION
  Report Type: Spontaneous
  Country: US (occurrence: US)
  Receive Date: 20190624
  Receipt Date: 20190624
  Transmission Date: 20191004
  Serious: Yes (Hospitalization, Congenital Anomaly)
  Sender: FDA-Public Use
  Company Number: None

PATIENT
  Age: 75 Year
  Sex: Male

DRUGS (8)
  1. EPOGEN [Suspect]
     Active Substance: ERYTHROPOIETIN
     Route: 058
     Dates: start: 20181227
  2. DEXAMETHASONE 4 MG [Concomitant]
     Active Substance: DEXAMETHASONE
  3. FAMOTIDINE 40MG [Concomitant]
     Active Substance: FAMOTIDINE
  4. EPOGEN [Suspect]
     Active Substance: ERYTHROPOIETIN
     Route: 058
     Dates: start: 20190128
  5. CALCITROL [Concomitant]
  6. SODIUM BICARBONATE. [Concomitant]
     Active Substance: SODIUM BICARBONATE
  7. TAMSULOSIN [Concomitant]
     Active Substance: TAMSULOSIN
  8. ATORVASTATIN 40MG [Concomitant]
     Active Substance: ATORVASTATIN

REACTIONS (2)
  - Head injury [None]
  - Fall [None]

NARRATIVE: CASE EVENT DATE: 20190621
